FAERS Safety Report 8222714-8 (Version None)
Quarter: 2012Q1

REPORT INFORMATION
  Report Type: 
  Country: None (occurrence: None)
  Receive Date: 20120315
  Receipt Date: 20120301
  Transmission Date: 20120608
  Serious: Yes (Other)
  Sender: FDA-Public Use
  Company Number: AU-1187955

PATIENT
  Age: 82 Year
  Sex: Female
  Weight: 70 kg

DRUGS (3)
  1. BSS PLUS [Suspect]
     Indication: INTRAOCULAR LENS IMPLANT
     Dosage: INTRAOCULAR
     Route: 031
     Dates: start: 20110907, end: 20110907
  2. TOBREX [Suspect]
     Indication: INTRAOCULAR LENS IMPLANT
     Dosage: OPHTHALMIC
     Route: 047
     Dates: start: 20110907, end: 20110907
  3. CEFAZOLIN [Concomitant]

REACTIONS (3)
  - MEDICATION ERROR [None]
  - TOXIC ANTERIOR SEGMENT SYNDROME [None]
  - POST PROCEDURAL COMPLICATION [None]
